FAERS Safety Report 5674432-8 (Version None)
Quarter: 2008Q1

REPORT INFORMATION
  Report Type: 
  Country: None (occurrence: None)
  Receive Date: 20080320
  Receipt Date: 20080213
  Transmission Date: 20080703
  Serious: No
  Sender: FDA-Public Use
  Company Number: US-BAYER-200814217NA

PATIENT
  Age: 35 Year
  Sex: Female
  Weight: 53 kg

DRUGS (2)
  1. MIRENA [Suspect]
     Indication: CONTRACEPTION
     Route: 015
     Dates: start: 20080212
  2. PRENATAL VITAMINS NOS [Concomitant]
     Indication: POSTPARTUM STATE
     Route: 048

REACTIONS (2)
  - ABDOMINAL PAIN LOWER [None]
  - BACK PAIN [None]
